APPROVED DRUG PRODUCT: CHOLEDYL SA
Active Ingredient: OXTRIPHYLLINE
Strength: 600MG
Dosage Form/Route: TABLET, EXTENDED RELEASE;ORAL
Application: A086742 | Product #001
Applicant: WARNER CHILCOTT CO LLC
Approved: Approved Prior to Jan 1, 1982 | RLD: No | RS: No | Type: DISCN